FAERS Safety Report 4375703-8 (Version None)
Quarter: 2004Q2

REPORT INFORMATION
  Report Type: 
  Country: None (occurrence: None)
  Receive Date: 20040607
  Receipt Date: 20040524
  Transmission Date: 20050107
  Serious: Yes (Hospitalization)
  Sender: FDA-Public Use
  Company Number: 6008954

PATIENT
  Age: 16 Year
  Sex: Female

DRUGS (4)
  1. LEVOTHYROX 100 (TABLETS) (LEVOTHYROXINE SODIUM) [Suspect]
     Dosage: 1 DOSAGE FORMS (1 DOSAGE FORMS, 1 IN 1 D) ORAL
     Route: 048
  2. RISPERDAL [Suspect]
     Dosage: 3, 5 MG ORAL
     Route: 048
  3. DEPAKOTE [Suspect]
     Dosage: 1 GM ORAL
     Route: 048
  4. TRANXENE (10 MG, CAPSULES) (CLORAZEPATE DIPOTASSIUM) [Suspect]
     Dosage: 30 MG (10 MG, 3 IN 1 D) ORAL
     Route: 048

REACTIONS (4)
  - AMMONIA INCREASED [None]
  - BUNDLE BRANCH BLOCK RIGHT [None]
  - FALL [None]
  - MALAISE [None]
